FAERS Safety Report 23539974 (Version 1)
Quarter: 2024Q1

REPORT INFORMATION
  Report Type: Report from Study
  Country: US (occurrence: US)
  Receive Date: 20240219
  Receipt Date: 20240219
  Transmission Date: 20240410
  Serious: Yes (Death)
  Sender: FDA-Public Use
  Company Number: US-PFIZER INC-202400042980

PATIENT
  Age: 94 Year
  Sex: Male

DRUGS (3)
  1. VYNDAMAX [Suspect]
     Active Substance: TAFAMIDIS
     Dosage: 61 MG, 1X/DAY
     Route: 048
  2. NPLATE [Concomitant]
     Active Substance: ROMIPLOSTIM
     Dosage: 50MCG/0.5ML SDV
  3. VENOFER [Concomitant]
     Active Substance: IRON SUCROSE
     Dosage: 20MG/ML 5ML VL

REACTIONS (1)
  - Death [Fatal]

NARRATIVE: CASE EVENT DATE: 20240122
